FAERS Safety Report 18779257 (Version 1)
Quarter: 2021Q1

REPORT INFORMATION
  Report Type: Spontaneous
  Country: US (occurrence: US)
  Receive Date: 20210125
  Receipt Date: 20210125
  Transmission Date: 20210419
  Serious: Yes (Hospitalization, Other)
  Sender: FDA-Public Use
  Company Number: US-LUPIN PHARMACEUTICALS INC.-2021-00413

PATIENT
  Age: 8 Decade
  Sex: Male

DRUGS (1)
  1. HYDROXYCHLOROQUINE [Suspect]
     Active Substance: HYDROXYCHLOROQUINE
     Indication: COVID-19
     Dosage: 200 MILLIGRAM, BID
     Route: 065
     Dates: start: 2020

REACTIONS (6)
  - Toxicity to various agents [Unknown]
  - Acute kidney injury [Unknown]
  - Nephropathy toxic [Unknown]
  - Cardiotoxicity [Unknown]
  - Electrocardiogram QT prolonged [Unknown]
  - Off label use [Unknown]

NARRATIVE: CASE EVENT DATE: 2020
